FAERS Safety Report 5734946-9 (Version None)
Quarter: 2008Q2

REPORT INFORMATION
  Report Type: 
  Country: None (occurrence: None)
  Receive Date: 20080508
  Receipt Date: 20080508
  Transmission Date: 20081010
  Serious: No
  Sender: FDA-Public Use
  Company Number: None

PATIENT
  Age: 44 Year
  Sex: Female
  Weight: 52.6173 kg

DRUGS (4)
  1. LISTERINE TOOTH DEFENSE RINSE SODIUM FLUORIDE 0.0221 % [Suspect]
     Indication: DENTAL CARIES
     Dosage: 2 TEASPOONFULLS 2 TIMES PO
     Route: 048
     Dates: start: 20080325, end: 20080410
  2. LISTERINE TOOTH DEFENSE RINSE SODIUM FLUORIDE 0.0221 % [Suspect]
     Indication: DENTAL DISORDER PROPHYLAXIS
     Dosage: 2 TEASPOONFULLS 2 TIMES PO
     Route: 048
     Dates: start: 20080325, end: 20080410
  3. LISTERINE TOOTH DEFENSE RINSE SODIUM FLUORIDE 0.0221 % [Suspect]
     Indication: GINGIVITIS
     Dosage: 2 TEASPOONFULLS 2 TIMES PO
     Route: 048
     Dates: start: 20080325, end: 20080410
  4. LISTERINE ESSENTIAL CARE SODIUM MONOFLUOROPHOSPHA [Suspect]
     Dosage: PEA SIZE 2 TIMES PO
     Route: 048
     Dates: start: 20080325, end: 20080410

REACTIONS (2)
  - AGEUSIA [None]
  - TOOTH DISCOLOURATION [None]
